FAERS Safety Report 20953021 (Version 2)
Quarter: 2022Q2

REPORT INFORMATION
  Report Type: Spontaneous
  Country: AU (occurrence: AU)
  Receive Date: 20220613
  Receipt Date: 20220627
  Transmission Date: 20220721
  Serious: Yes (Hospitalization)
  Sender: FDA-Public Use
  Company Number: AU-MYLANLABS-2022M1043310

PATIENT
  Age: 36 Year
  Sex: Female

DRUGS (1)
  1. CLOZARIL [Suspect]
     Active Substance: CLOZAPINE
     Indication: Schizophrenia
     Dosage: 200 MILLIGRAM
     Route: 048
     Dates: start: 20220513

REACTIONS (3)
  - Troponin increased [Unknown]
  - C-reactive protein abnormal [Unknown]
  - Myocarditis [Recovered/Resolved]

NARRATIVE: CASE EVENT DATE: 20220606
